FAERS Safety Report 6397721-0 (Version None)
Quarter: 2009Q4

REPORT INFORMATION
  Report Type: 
  Country: None (occurrence: None)
  Receive Date: 20091007
  Receipt Date: 20090925
  Transmission Date: 20100525
  Serious: Yes (Other)
  Sender: FDA-Public Use
  Company Number: 2009AP003930

PATIENT
  Age: 65 Year
  Sex: Female

DRUGS (4)
  1. OMEPRAZOLE [Suspect]
     Dosage: 20 MG; QD; 40 MG; QD
  2. FAMOTIDINE [Concomitant]
  3. RABEPRAZOLE [Concomitant]
  4. MESALAZINE [Concomitant]

REACTIONS (2)
  - COLITIS COLLAGENOUS [None]
  - DYSPEPSIA [None]
